FAERS Safety Report 4808700-6 (Version None)
Quarter: 2005Q4

REPORT INFORMATION
  Report Type: 
  Country: None (occurrence: None)
  Receive Date: 20051021
  Receipt Date: 20021007
  Transmission Date: 20060501
  Serious: No
  Sender: FDA-Public Use
  Company Number: US_021088890

PATIENT
  Age: 19 Year
  Sex: Male

DRUGS (2)
  1. ZYPREXA [Suspect]
     Indication: SCHIZOPHRENIA
     Dosage: 12.5 MG/DAY
     Dates: start: 20011001
  2. CHLORPROMAZINE HCL [Concomitant]

REACTIONS (1)
  - WHITE BLOOD CELL COUNT DECREASED [None]
